FAERS Safety Report 25890316 (Version 1)
Quarter: 2025Q4

REPORT INFORMATION
  Report Type: Spontaneous
  Country: US (occurrence: US)
  Receive Date: 20251007
  Receipt Date: 20251007
  Transmission Date: 20260118
  Serious: Yes (Other)
  Sender: CHIMERIX
  Company Number: US-CHIMERIX-US-CHI-25-000289

PATIENT
  Age: 25 Year
  Sex: Female
  Weight: 87.528 kg

DRUGS (9)
  1. MODEYSO [Suspect]
     Active Substance: DORDAVIPRONE
     Indication: Brain stem glioma
     Dosage: 625 MILLIGRAM, WEEKLY
     Route: 048
     Dates: start: 202509, end: 20250923
  2. MELATONIN [Concomitant]
     Active Substance: MELATONIN
     Indication: Product used for unknown indication
  3. SENNAE [Concomitant]
     Indication: Product used for unknown indication
     Dosage: UNK
  4. DANTROLENE [Concomitant]
     Active Substance: DANTROLENE
     Indication: Product used for unknown indication
     Dosage: UNK
  5. DOCUSATE [Concomitant]
     Active Substance: DOCUSATE
     Indication: Product used for unknown indication
     Dosage: UNK
  6. GABAPENTIN [Concomitant]
     Active Substance: GABAPENTIN
     Indication: Product used for unknown indication
     Dosage: UNK
  7. IBUPROFEN [Concomitant]
     Active Substance: IBUPROFEN
     Indication: Product used for unknown indication
     Dosage: UNK
  8. LORAZEPAM [Concomitant]
     Active Substance: LORAZEPAM
     Indication: Product used for unknown indication
     Dosage: UNK
  9. NALOXONE [Concomitant]
     Active Substance: NALOXONE
     Indication: Product used for unknown indication
     Dosage: UNK

REACTIONS (1)
  - Disease progression [Unknown]

NARRATIVE: CASE EVENT DATE: 20250923
